FAERS Safety Report 9283142 (Version 1)
Quarter: 2013Q2

REPORT INFORMATION
  Report Type: Spontaneous
  Country: US (occurrence: US)
  Receive Date: 20130510
  Receipt Date: 20130510
  Transmission Date: 20140414
  Serious: Yes (Other)
  Sender: FDA-Public Use
  Company Number: US-GLAXOSMITHKLINE-A0982897A

PATIENT
  Age: 67 Year
  Sex: Female

DRUGS (6)
  1. TYKERB [Suspect]
     Indication: HEPATIC CANCER
     Dosage: 1000MG PER DAY
     Route: 048
     Dates: start: 201201
  2. XELODA [Suspect]
     Indication: HEPATIC CANCER
     Dosage: 1500MG TWICE PER DAY
     Route: 048
     Dates: start: 201201
  3. ZOMETA [Concomitant]
  4. SANDOSTATIN [Concomitant]
  5. AMLODIPINE [Concomitant]
  6. PRILOSEC [Concomitant]

REACTIONS (1)
  - Palmar-plantar erythrodysaesthesia syndrome [Not Recovered/Not Resolved]
